FAERS Safety Report 4452030-1 (Version None)
Quarter: 2004Q3

REPORT INFORMATION
  Report Type: 
  Country: None (occurrence: None)
  Receive Date: 20040913
  Receipt Date: 20040622
  Transmission Date: 20050211
  Serious: No
  Sender: FDA-Public Use
  Company Number: 2004-BP-05023BP(0)

PATIENT
  Sex: Male

DRUGS (7)
  1. SPIRIVA [Suspect]
     Indication: CHRONIC OBSTRUCTIVE AIRWAYS DISEASE
     Dosage: 18 MCG (18 MCG), IH
     Dates: start: 20040614, end: 20040620
  2. ALTACE [Concomitant]
  3. PLAVIX [Concomitant]
  4. LIPITOR [Concomitant]
  5. ATENOLOL [Concomitant]
  6. ADVAIR (SERETIDE MITE) [Concomitant]
  7. SINGULAIR [Concomitant]

REACTIONS (1)
  - CHEST PAIN [None]
